FAERS Safety Report 5532247-5 (Version None)
Quarter: 2007Q4

REPORT INFORMATION
  Report Type: 
  Country: None (occurrence: None)
  Receive Date: 20071130
  Receipt Date: 20071130
  Transmission Date: 20080405
  Serious: Yes (Other)
  Sender: FDA-Public Use
  Company Number: None

PATIENT
  Sex: Female
  Weight: 78.0187 kg

DRUGS (2)
  1. METHADONE HCL [Suspect]
     Indication: FIBROMYALGIA
     Dosage: 50/25 1 Q 6 HR ORAL
     Route: 048
     Dates: start: 20070702
  2. MS CONTIN [Suspect]
     Indication: FIBROMYALGIA
     Dosage: 30 MG 1 BID ORAL
     Route: 048
     Dates: start: 20071101

REACTIONS (2)
  - SEDATION [None]
  - VISION BLURRED [None]
